FAERS Safety Report 4290158-X (Version None)
Quarter: 2004Q1

REPORT INFORMATION
  Report Type: 
  Country: None (occurrence: None)
  Receive Date: 20040209
  Receipt Date: 20040202
  Transmission Date: 20041129
  Serious: Yes (Death, Hospitalization)
  Sender: FDA-Public Use
  Company Number: US-JNJFOC-20040200495

PATIENT
  Age: 62 Year
  Sex: Male

DRUGS (3)
  1. ULTRAM [Suspect]
     Indication: HEPATIC PAIN
     Dosage: ORAL
     Route: 048
  2. K TABS (POTASSIUM) [Concomitant]
  3. URSO [Concomitant]

REACTIONS (1)
  - HEPATIC FAILURE [None]
